FAERS Safety Report 8533059-0 (Version None)
Quarter: 2012Q3

REPORT INFORMATION
  Report Type: 
  Country: None (occurrence: None)
  Receive Date: 20120724
  Receipt Date: 20120716
  Transmission Date: 20120928
  Serious: Yes (Hospitalization)
  Sender: FDA-Public Use
  Company Number: US-BAYER-2012-072133

PATIENT
  Age: 28 Year
  Sex: Female

DRUGS (6)
  1. YASMIN [Suspect]
  2. ZYRTEC [Concomitant]
     Indication: URTICARIA
     Dosage: 10 MG, UNK
     Dates: start: 20070209
  3. LAMICTAL [Concomitant]
     Indication: DEPRESSION
  4. MEDROL [Concomitant]
     Indication: URTICARIA
     Dosage: 80 MG, UNK
     Route: 030
     Dates: start: 20070209
  5. PREDNISONE [Concomitant]
     Indication: URTICARIA
     Dosage: 40 MG, UNK
     Dates: start: 20070209
  6. LEXAPRO [Concomitant]
     Indication: DEPRESSION

REACTIONS (4)
  - DEEP VEIN THROMBOSIS [None]
  - PULMONARY EMBOLISM [None]
  - VENA CAVA THROMBOSIS [None]
  - THROMBOPHLEBITIS SUPERFICIAL [None]
